FAERS Safety Report 7168084-8 (Version None)
Quarter: 2010Q4

REPORT INFORMATION
  Report Type: 
  Country: None (occurrence: None)
  Receive Date: 20101216
  Receipt Date: 20101213
  Transmission Date: 20110411
  Serious: Yes (Death, Hospitalization)
  Sender: FDA-Public Use
  Company Number: PHHY2009US66483

PATIENT
  Sex: Female

DRUGS (1)
  1. EXJADE [Suspect]
     Dosage: 125 MG, QD
     Route: 048

REACTIONS (2)
  - HEART VALVE REPLACEMENT [None]
  - RESPIRATORY FAILURE [None]
